FAERS Safety Report 11419153 (Version 2)
Quarter: 2015Q4

REPORT INFORMATION
  Report Type: Report from Study
  Country: DE (occurrence: DE)
  Receive Date: 20150826
  Receipt Date: 20151013
  Transmission Date: 20160304
  Serious: Yes (Hospitalization)
  Sender: FDA-Public Use
  Company Number: DE-TEVA-588567ISR

PATIENT
  Age: 61 Year
  Sex: Male
  Weight: 70 kg

DRUGS (5)
  1. PANTOPRAZOL [Suspect]
     Active Substance: PANTOPRAZOLE SODIUM
     Indication: PROPHYLAXIS
     Dosage: 40 MILLIGRAM DAILY; IN THE MORNIG
     Route: 065
     Dates: start: 20150708
  2. TREOSULFAN [Suspect]
     Active Substance: TREOSULFAN
     Indication: BONE MARROW CONDITIONING REGIMEN
     Dosage: 58.2 MILLIGRAM DAILY;
     Route: 042
     Dates: start: 20150705, end: 20150707
  3. VALACICLOVIR [Suspect]
     Active Substance: VALACYCLOVIR HYDROCHLORIDE
     Indication: PROPHYLAXIS
     Dosage: 1000 MILLIGRAM DAILY;
     Dates: start: 20150708
  4. FLUDARABIN [Suspect]
     Active Substance: FLUDARABINE PHOSPHATE
     Indication: BONE MARROW CONDITIONING REGIMEN
     Dosage: 19.4 GRAM DAILY;
     Route: 042
     Dates: start: 20150702, end: 20150706
  5. COTRIM D.S. [Suspect]
     Active Substance: SULFAMETHOXAZOLE\TRIMETHOPRIM
     Indication: PROPHYLAXIS
     Dosage: MONDAY WEDNESDAY AND FRIDAY
     Dates: start: 20150708

REACTIONS (1)
  - Lung infection [Recovering/Resolving]

NARRATIVE: CASE EVENT DATE: 20150731
